FAERS Safety Report 13634641 (Version 5)
Quarter: 2017Q4

REPORT INFORMATION
  Report Type: Report from Study
  Country: ZA (occurrence: ZA)
  Receive Date: 20170609
  Receipt Date: 20171013
  Transmission Date: 20180320
  Serious: Yes (Disabling, Other)
  Sender: FDA-Public Use
  Company Number: ZA-BRISTOL-MYERS SQUIBB COMPANY-BMS-2017-047237

PATIENT
  Sex: Male

DRUGS (1)
  1. ABATACEPT [Suspect]
     Active Substance: ABATACEPT
     Indication: RHEUMATOID ARTHRITIS
     Dosage: 125 MG, QWK
     Route: 058
     Dates: start: 20170515

REACTIONS (6)
  - Pain [Unknown]
  - Tooth abscess [Unknown]
  - Tooth extraction [Unknown]
  - Ligament sprain [Recovered/Resolved]
  - Fall [Unknown]
  - Drug ineffective [Unknown]
